FAERS Safety Report 23646488 (Version 4)
Quarter: 2025Q3

REPORT INFORMATION
  Report Type: Spontaneous
  Country: JP (occurrence: JP)
  Receive Date: 20240319
  Receipt Date: 20250930
  Transmission Date: 20251021
  Serious: Yes (Other)
  Sender: TAKEDA
  Company Number: JP-TAKEDA-2022TUS013790

PATIENT
  Age: 57 Year
  Sex: Female

DRUGS (4)
  1. LIALDA [Suspect]
     Active Substance: MESALAMINE
     Indication: Colitis ulcerative
     Dosage: 4800 MILLIGRAM, QD
     Dates: start: 202202
  2. LIALDA [Suspect]
     Active Substance: MESALAMINE
     Dosage: 3600 MILLIGRAM, QD
  3. LIALDA [Suspect]
     Active Substance: MESALAMINE
     Dosage: 4800 MILLIGRAM, QD
  4. Cortiment [Concomitant]
     Indication: Colitis ulcerative

REACTIONS (15)
  - Electrocardiogram ST segment elevation [Unknown]
  - Colitis ulcerative [Recovering/Resolving]
  - Thirst [Unknown]
  - Faecal volume decreased [Unknown]
  - Infrequent bowel movements [Recovering/Resolving]
  - Gastrointestinal motility disorder [Unknown]
  - Bundle branch block right [Unknown]
  - Malaise [Unknown]
  - Muscular weakness [Unknown]
  - Gastritis [Unknown]
  - Weight decreased [Unknown]
  - Abdominal pain upper [Unknown]
  - Diarrhoea [Recovered/Resolved]
  - Abdominal distension [Unknown]
  - Fatigue [Unknown]
